FAERS Safety Report 6829314-2 (Version None)
Quarter: 2010Q2

REPORT INFORMATION
  Report Type: 
  Country: None (occurrence: None)
  Receive Date: 20100621
  Receipt Date: 20100607
  Transmission Date: 20101027
  Serious: Yes (Death)
  Sender: FDA-Public Use
  Company Number: THYM-1000874

PATIENT
  Age: 54 Year
  Sex: Male
  Weight: 60 kg

DRUGS (16)
  1. THYMOGLOBULIN [Suspect]
     Indication: BONE MARROW CONDITIONING REGIMEN
     Dosage: 2.5 MG QD, INTRAVENOUS; 147.5 MG, QD, INTRAVENOUS
     Route: 042
     Dates: start: 20081210, end: 20081210
  2. THYMOGLOBULIN [Suspect]
     Indication: BONE MARROW CONDITIONING REGIMEN
     Dosage: 2.5 MG QD, INTRAVENOUS; 147.5 MG, QD, INTRAVENOUS
     Route: 042
     Dates: start: 20081210, end: 20081210
  3. FLUDARABINE PHOSPHATE [Concomitant]
  4. MELPHALAN HYDROCHLORIDE [Concomitant]
  5. METHYLPREDNISOLONE [Concomitant]
  6. SULFAMETHOPRIM (SULFAMETHOXAZOLE, TRIMETHOPRIM) [Concomitant]
  7. ACICLOVIR (ACICLOVIR SODIUM) [Concomitant]
  8. MICAFUNGIN SODIUM (MICAFUNGIN SODIUM) [Concomitant]
  9. MYCOPHENOLATE MOFETIL [Concomitant]
  10. TACROLIMUS [Concomitant]
  11. METHOTREXATE [Concomitant]
  12. CIPROFLOXACIN HYDROCHLORIDE [Concomitant]
  13. VANCOMYCIN HYDROCHLORIDE [Concomitant]
  14. CEFEPIME HYDROCHLORIDE [Concomitant]
  15. CLINDAMYCIN PHOSPHATE [Concomitant]
  16. CEFTAZIDIME [Concomitant]

REACTIONS (9)
  - CARDIAC FAILURE [None]
  - DEPRESSED LEVEL OF CONSCIOUSNESS [None]
  - ENGRAFT FAILURE [None]
  - FEBRILE NEUTROPENIA [None]
  - INFECTION [None]
  - MALIGNANT NEOPLASM PROGRESSION [None]
  - MULTI-ORGAN FAILURE [None]
  - RENAL FAILURE [None]
  - TRICHOSPORON INFECTION [None]
